FAERS Safety Report 7085358-X (Version None)
Quarter: 2010Q4

REPORT INFORMATION
  Report Type: 
  Country: None (occurrence: None)
  Receive Date: 20101008
  Receipt Date: 20090827
  Transmission Date: 20110411
  Serious: Yes (Other)
  Sender: FDA-Public Use
  Company Number: 2009SP023221

PATIENT
  Age: 59 Year
  Sex: Male
  Weight: 107.1033 kg

DRUGS (2)
  1. TEMOZOLOMIDE [Suspect]
     Indication: GLIOBLASTOMA
     Dates: start: 20080801, end: 20090201
  2. TEMOZOLOMIDE [Suspect]
     Indication: GLIOBLASTOMA
     Dates: start: 20080519, end: 20090630

REACTIONS (2)
  - DISEASE PROGRESSION [None]
  - LYMPHOCYTE COUNT ABNORMAL [None]
